FAERS Safety Report 18657741 (Version 1)
Quarter: 2020Q4

REPORT INFORMATION
  Report Type: Other
  Country: None (occurrence: CN)
  Receive Date: 20201224
  Receipt Date: 20201224
  Transmission Date: 20210114
  Serious: Yes (Hospitalization)
  Sender: FDA-Public Use
  Company Number: CN-JIANGSU HENGRUI MEDICINE CO., LTD.-2103450

PATIENT
  Age: 71 Year
  Sex: Male
  Weight: 57 kg

DRUGS (2)
  1. OXALIPLATIN INJECTION USP, 5 MG/ML, PACKAGED IN 50 MG/10 ML AND 100 MG [Suspect]
     Active Substance: OXALIPLATIN
     Indication: POSTOPERATIVE CARE
     Route: 041
     Dates: start: 20201127, end: 20201127
  2. GLUCOSE INJECTION [Concomitant]
     Active Substance: DEXTROSE
     Route: 041
     Dates: start: 20201127, end: 20201127

REACTIONS (4)
  - Chest discomfort [Recovering/Resolving]
  - Erythema multiforme [Recovering/Resolving]
  - Vomiting [Recovering/Resolving]
  - Pruritus [Recovering/Resolving]

NARRATIVE: CASE EVENT DATE: 20201127
